FAERS Safety Report 18037161 (Version 2)
Quarter: 2020Q3

REPORT INFORMATION
  Report Type: Report from Study
  Country: US (occurrence: US)
  Receive Date: 20200717
  Receipt Date: 20200723
  Transmission Date: 20201103
  Serious: Yes (Other)
  Sender: FDA-Public Use
  Company Number: US-BEIGENE USA INC-BGN-2020-001191

PATIENT

DRUGS (1)
  1. BRUKINSA [Suspect]
     Active Substance: ZANUBRUTINIB
     Indication: ADULT T-CELL LYMPHOMA/LEUKAEMIA
     Dosage: 240 MILLIGRAM, QD
     Route: 048
     Dates: start: 20200713

REACTIONS (2)
  - Pruritus [Recovered/Resolved]
  - Neuropathy peripheral [Unknown]
